FAERS Safety Report 17757947 (Version 1)
Quarter: 2020Q2

REPORT INFORMATION
  Report Type: Spontaneous
  Country: US (occurrence: US)
  Receive Date: 20200507
  Receipt Date: 20200507
  Transmission Date: 20200714
  Serious: Yes (Other)
  Sender: FDA-Public Use
  Company Number: US-TEVA-2020-US-1231491

PATIENT
  Age: 16 Year
  Sex: Male

DRUGS (3)
  1. IMIQUIMOD. [Suspect]
     Active Substance: IMIQUIMOD
     Indication: PYOGENIC GRANULOMA
     Dosage: APPLIED DAILY
     Route: 061
  2. IMIQUIMOD. [Suspect]
     Active Substance: IMIQUIMOD
     Indication: VASCULAR SKIN DISORDER
  3. ISOTRETINOIN. [Suspect]
     Active Substance: ISOTRETINOIN
     Indication: ACNE CYSTIC
     Dosage: 40 MILLIGRAM DAILY;
     Route: 065

REACTIONS (3)
  - Pyogenic granuloma [Recovered/Resolved]
  - Vascular skin disorder [Recovered/Resolved]
  - Off label use [Unknown]
